FAERS Safety Report 9575083 (Version 1)
Quarter: 2013Q4

REPORT INFORMATION
  Report Type: Spontaneous
  Country: US (occurrence: US)
  Receive Date: 20131001
  Receipt Date: 20131001
  Transmission Date: 20140711
  Serious: Yes (Other)
  Sender: FDA-Public Use
  Company Number: US-CUBIST PHARMACEUTICALS, INC.-2013CBST000874

PATIENT
  Sex: 0

DRUGS (3)
  1. CUBICIN [Suspect]
     Indication: ENDOCARDITIS
     Dosage: 8 MG/KG, UNK (D 2-3)
     Route: 065
  2. CUBICIN [Suspect]
     Indication: STAPHYLOCOCCAL BACTERAEMIA
     Dosage: 10 MG/KG, UNK (D 4-9)
     Route: 065
  3. CEFTAROLINE FOSAMIL [Concomitant]
     Indication: STAPHYLOCOCCAL BACTERAEMIA
     Dosage: 600 MG, Q24H (D 2-4)
     Route: 065

REACTIONS (1)
  - Pneumonia staphylococcal [Unknown]
